FAERS Safety Report 13918473 (Version 3)
Quarter: 2018Q1

REPORT INFORMATION
  Report Type: Spontaneous
  Country: US (occurrence: US)
  Receive Date: 20170829
  Receipt Date: 20180131
  Transmission Date: 20180508
  Serious: No
  Sender: FDA-Public Use
  Company Number: US-ACTELION-A-US2017-158705

PATIENT
  Age: 72 Year
  Sex: Female
  Weight: 119.73 kg

DRUGS (2)
  1. TRACLEER [Suspect]
     Active Substance: BOSENTAN
     Indication: PULMONARY ARTERIAL HYPERTENSION
     Dosage: 62.5 MG, BID
     Route: 048
  2. NIFEDIPINE. [Concomitant]
     Active Substance: NIFEDIPINE

REACTIONS (4)
  - Blister [Unknown]
  - Cough [Unknown]
  - Back pain [Unknown]
  - Back disorder [Unknown]
